FAERS Safety Report 5528961-8 (Version None)
Quarter: 2007Q4

REPORT INFORMATION
  Report Type: 
  Country: None (occurrence: None)
  Receive Date: 20071129
  Receipt Date: 20071122
  Transmission Date: 20080405
  Serious: Yes (Other)
  Sender: FDA-Public Use
  Company Number: CA-WYE-G00669007

PATIENT

DRUGS (1)
  1. TEMSIROLIMUS [Suspect]
     Dosage: UNKNOWN
     Route: 042
     Dates: start: 20070101

REACTIONS (1)
  - ANAL FISTULA [None]
